FAERS Safety Report 8019194-4 (Version None)
Quarter: 2012Q1

REPORT INFORMATION
  Report Type: 
  Country: None (occurrence: None)
  Receive Date: 20120103
  Receipt Date: 20111228
  Transmission Date: 20120608
  Serious: Yes (Hospitalization)
  Sender: FDA-Public Use
  Company Number: US-ABBOTT-11P-163-0887229-00

PATIENT
  Sex: Male
  Weight: 104.42 kg

DRUGS (3)
  1. UNKNOWN ANTIDIARRHEAL MEDICATION [Concomitant]
     Indication: DIARRHOEA
  2. HUMIRA [Suspect]
     Indication: CROHN'S DISEASE
     Dosage: 4 INJECTIONS INITIAL DOSE
     Dates: start: 20111215, end: 20111215
  3. UNKNOWN PAIN MEDICATION [Concomitant]
     Indication: PRODUCT USED FOR UNKNOWN INDICATION

REACTIONS (3)
  - CHEST DISCOMFORT [None]
  - DIZZINESS [None]
  - PAIN IN EXTREMITY [None]
